FAERS Safety Report 7478363-2 (Version None)
Quarter: 2011Q2

REPORT INFORMATION
  Report Type: 
  Country: None (occurrence: None)
  Receive Date: 20110513
  Receipt Date: 20110509
  Transmission Date: 20111010
  Serious: Yes (Life-Threatening, Hospitalization, Other)
  Sender: FDA-Public Use
  Company Number: IT-PFIZER INC-2011088872

PATIENT
  Age: 75 Year
  Sex: Female

DRUGS (5)
  1. BLINDED THERAPY [Suspect]
     Indication: TYPE 2 DIABETES MELLITUS
     Dosage: 5/10 MG/KG
     Route: 048
     Dates: start: 20090423, end: 20100816
  2. VALSARTAN [Suspect]
     Indication: HYPERTENSION
     Dosage: 150 MG, UNK
     Dates: start: 20091217, end: 20100819
  3. AMLODIPINE BESYLATE [Suspect]
     Indication: HYPERTENSION
     Dosage: 10 MG, UNK
     Dates: start: 20020101, end: 20100819
  4. FUROSEMIDE [Suspect]
     Dosage: 25 MG, UNK
  5. ATENOLOL [Suspect]
     Indication: HYPERTENSION
     Dosage: 100 MG, UNK
     Dates: start: 20020101

REACTIONS (1)
  - RENAL FAILURE ACUTE [None]
